FAERS Safety Report 13946949 (Version 1)
Quarter: 2017Q3

REPORT INFORMATION
  Report Type: Spontaneous
  Country: IN (occurrence: IN)
  Receive Date: 20170907
  Receipt Date: 20170907
  Transmission Date: 20171128
  Serious: Yes (Hospitalization, Other)
  Sender: FDA-Public Use
  Company Number: IN-BAUSCH-BL-2017-026209

PATIENT
  Age: 22 Year
  Sex: Male

DRUGS (12)
  1. AZATHIOPRINE. [Suspect]
     Active Substance: AZATHIOPRINE
     Indication: TYPE 2 LEPRA REACTION
     Route: 065
  2. THALIDOMIDE [Suspect]
     Active Substance: THALIDOMIDE
     Indication: TYPE 2 LEPRA REACTION
     Route: 065
  3. WARFARIN [Suspect]
     Active Substance: WARFARIN
     Dosage: DAY 04 TO DAY 07
     Route: 065
  4. WARFARIN [Suspect]
     Active Substance: WARFARIN
     Dosage: DAY 18 TO DAY 22
     Route: 065
  5. AZATHIOPRINE. [Suspect]
     Active Substance: AZATHIOPRINE
     Route: 065
  6. WARFARIN [Suspect]
     Active Substance: WARFARIN
     Indication: PRODUCT USED FOR UNKNOWN INDICATION
     Dosage: DAY 01 TO DAY 04
     Route: 065
  7. WARFARIN [Suspect]
     Active Substance: WARFARIN
     Dosage: DAY 22 TO DAY 26
     Route: 065
  8. RIFAMPICIN [Concomitant]
     Active Substance: RIFAMPIN
     Indication: LEPROSY
     Dosage: 600 MG MONTHLY
  9. PREDNISOLONE. [Suspect]
     Active Substance: PREDNISOLONE
     Indication: TYPE 2 LEPRA REACTION
     Route: 048
  10. CLOFAZIMINE [Concomitant]
     Active Substance: CLOFAZIMINE
     Indication: LEPROSY
  11. WARFARIN [Suspect]
     Active Substance: WARFARIN
     Dosage: DAY 14 TO DAY 18
     Route: 065
  12. DAPSONE. [Suspect]
     Active Substance: DAPSONE
     Indication: LEPROSY
     Route: 065

REACTIONS (3)
  - Anticoagulation drug level above therapeutic [Not Recovered/Not Resolved]
  - Deep vein thrombosis [Recovering/Resolving]
  - Drug interaction [Unknown]
